FAERS Safety Report 7751468-4 (Version None)
Quarter: 2011Q3

REPORT INFORMATION
  Report Type: 
  Country: None (occurrence: None)
  Receive Date: 20110914
  Receipt Date: 20110906
  Transmission Date: 20111222
  Serious: Yes (Other)
  Sender: FDA-Public Use
  Company Number: PHHY2011CA24210

PATIENT
  Sex: Male

DRUGS (1)
  1. SANDOSTATIN LAR [Suspect]
     Indication: THYROID CANCER
     Dosage: 30 MG, EVERY 4 WEEKS
     Route: 030
     Dates: start: 20110224

REACTIONS (3)
  - BLOOD PRESSURE DECREASED [None]
  - FACE OEDEMA [None]
  - BLOOD PRESSURE SYSTOLIC INCREASED [None]
